FAERS Safety Report 24726209 (Version 1)
Quarter: 2024Q4

REPORT INFORMATION
  Report Type: Spontaneous
  Country: US (occurrence: None)
  Receive Date: 20241211
  Receipt Date: 20241211
  Transmission Date: 20250115
  Serious: Yes (Life-Threatening)
  Sender: Public
  Company Number: None

PATIENT
  Age: 55 Year
  Sex: Male

DRUGS (1)
  1. FUROSEMIDE [Suspect]
     Active Substance: FUROSEMIDE
     Indication: Fluid retention
     Dosage: FREQUENCY : AS NEEDED;?
     Route: 048
     Dates: start: 20231031, end: 20231114

REACTIONS (5)
  - Hyponatraemia [None]
  - Acute kidney injury [None]
  - Hypomagnesaemia [None]
  - Hyperkalaemia [None]
  - Metabolic acidosis [None]

NARRATIVE: CASE EVENT DATE: 20231114
